FAERS Safety Report 13893972 (Version 2)
Quarter: 2017Q3

REPORT INFORMATION
  Report Type: Spontaneous
  Country: CN (occurrence: CN)
  Receive Date: 20170822
  Receipt Date: 20170831
  Transmission Date: 20171127
  Serious: Yes (Hospitalization)
  Sender: FDA-Public Use
  Company Number: CN-ELI_LILLY_AND_COMPANY-CN201708006249

PATIENT
  Age: 80 Year
  Sex: Female

DRUGS (3)
  1. ACARBOSA [Concomitant]
     Indication: DIABETES MELLITUS
     Dosage: 1 DF, TID
     Route: 048
     Dates: start: 2016
  2. HUMULIN 70/30 [Suspect]
     Active Substance: INSULIN HUMAN
     Indication: DIABETES MELLITUS
     Dosage: 16 U, EACH MORNING
     Route: 058
     Dates: start: 2007
  3. HUMULIN 70/30 [Suspect]
     Active Substance: INSULIN HUMAN
     Dosage: 14 U, EACH EVENING
     Route: 058
     Dates: start: 2007

REACTIONS (2)
  - Pathological fracture [Unknown]
  - Blood glucose increased [Unknown]
